FAERS Safety Report 19443959 (Version 1)
Quarter: 2021Q2

REPORT INFORMATION
  Report Type: Spontaneous
  Country: SG (occurrence: SG)
  Receive Date: 20210621
  Receipt Date: 20210621
  Transmission Date: 20210717
  Serious: Yes (Death)
  Sender: FDA-Public Use
  Company Number: SG-BAYER-2021-159847

PATIENT
  Sex: Female

DRUGS (1)
  1. LAROTRECTINIB [Suspect]
     Active Substance: LAROTRECTINIB
     Indication: PANCREATIC CARCINOMA

REACTIONS (1)
  - Pancreatic carcinoma [Fatal]
